FAERS Safety Report 10384912 (Version 3)
Quarter: 2016Q2

REPORT INFORMATION
  Report Type: Report from Study
  Country: CA (occurrence: CA)
  Receive Date: 20140814
  Receipt Date: 20160422
  Transmission Date: 20160815
  Serious: Yes (Other)
  Sender: FDA-Public Use
  Company Number: CA-AMGEN-CANSP2014061174

PATIENT
  Age: 74 Year
  Sex: Female

DRUGS (1)
  1. PROLIA [Suspect]
     Active Substance: DENOSUMAB
     Indication: OSTEOPOROSIS POSTMENOPAUSAL
     Dosage: 60 MG, Q6MO
     Route: 058
     Dates: start: 20120405

REACTIONS (6)
  - Tooth disorder [Not Recovered/Not Resolved]
  - Osteomyelitis [Unknown]
  - Oral pustule [Recovered/Resolved]
  - Sinusitis [Not Recovered/Not Resolved]
  - Dental implantation [Unknown]
  - Oral cavity fistula [Recovered/Resolved]

NARRATIVE: CASE EVENT DATE: 2014
